FAERS Safety Report 21185543 (Version 1)
Quarter: 2022Q3

REPORT INFORMATION
  Report Type: Spontaneous
  Country: US (occurrence: None)
  Receive Date: 20220808
  Receipt Date: 20220808
  Transmission Date: 20221026
  Serious: Yes (Other)
  Sender: FDA-Public Use
  Company Number: None

PATIENT
  Age: 63 Year
  Sex: Male
  Weight: 67.5 kg

DRUGS (4)
  1. DIAZEPAM [Suspect]
     Active Substance: DIAZEPAM
     Indication: Insomnia
     Dosage: OTHER QUANTITY : 2 TABLET(S);?FREQUENCY : AT BEDTIME;?
     Route: 048
     Dates: start: 20220801, end: 20220808
  2. DIAZEPAM [Concomitant]
     Active Substance: DIAZEPAM
  3. LISINOPRIL [Concomitant]
     Active Substance: LISINOPRIL
  4. PEPCID [Concomitant]
     Active Substance: FAMOTIDINE

REACTIONS (3)
  - Tic [None]
  - Muscle tightness [None]
  - Hallucination [None]

NARRATIVE: CASE EVENT DATE: 20220807
